FAERS Safety Report 11211022 (Version 1)
Quarter: 2015Q2

REPORT INFORMATION
  Report Type: Spontaneous
  Country: TW (occurrence: TW)
  Receive Date: 20150623
  Receipt Date: 20150623
  Transmission Date: 20150821
  Serious: Yes (Other)
  Sender: FDA-Public Use
  Company Number: PHHY2015TW073730

PATIENT
  Age: 4 Year
  Sex: Female

DRUGS (1)
  1. ISONIAZID. [Suspect]
     Active Substance: ISONIAZID
     Indication: TUBERCULOSIS
     Route: 065

REACTIONS (4)
  - Immune system disorder [Unknown]
  - Drug-induced liver injury [Unknown]
  - Skin disorder [Unknown]
  - Jaundice [Unknown]
